FAERS Safety Report 18176287 (Version 2)
Quarter: 2022Q4

REPORT INFORMATION
  Report Type: Spontaneous
  Country: DE (occurrence: DE)
  Receive Date: 20200820
  Receipt Date: 20221212
  Transmission Date: 20230112
  Serious: Yes (Hospitalization)
  Sender: FDA-Public Use
  Company Number: DE-ADRED-05139-01

PATIENT
  Age: 80 Year
  Sex: Male

DRUGS (12)
  1. TORSEMIDE [Suspect]
     Active Substance: TORSEMIDE
     Indication: Product used for unknown indication
     Dosage: 10 MILLIGRAM (10 MG, 1-0.5-0-0, TABLETS)
     Route: 065
  2. RAMIPRIL [Suspect]
     Active Substance: RAMIPRIL
     Indication: Product used for unknown indication
     Dosage: 2.5 MILLIGRAM (2.5 MG, 1-0-1-0, TABLETS)
     Route: 065
  3. OMEPRAZOLE [Concomitant]
     Active Substance: OMEPRAZOLE
     Dosage: 20 MILLIGRAM (20 MG, 1-0-0-0, CAPSULES)
     Route: 065
  4. AMLODIPINE BESYLATE [Concomitant]
     Active Substance: AMLODIPINE BESYLATE
     Dosage: 5 MILLIGRAM (5 MG, 1-0-0-0, TABLETS)
     Route: 065
  5. EISEN-DIASPORAL [Concomitant]
     Dosage: 100 MILLIGRAM (100 MG, 1-0-0-0, CAPSULES)
     Route: 065
  6. SITAGLIPTIN [Concomitant]
     Active Substance: SITAGLIPTIN
     Dosage: 50 MILLIGRAM (50 MG, 0.5-0-0-0, TABLETS)
     Route: 065
  7. SIMVASTATIN [Concomitant]
     Active Substance: SIMVASTATIN
     Dosage: 20 MILLIGRAM (20 MG, 1-0-0-0, TABLETS)
     Route: 065
  8. SODIUM BICARBONATE [Concomitant]
     Active Substance: SODIUM BICARBONATE
     Dosage: 1 GRAM, (1 G, 0-1-0-0, TABLETS)
     Route: 065
  9. ALLOPURINOL [Concomitant]
     Active Substance: ALLOPURINOL
     Dosage: 100 MG, 1-0-0-0, TABLETS
     Route: 065
  10. VITAMIN D [Concomitant]
     Active Substance: VITAMIN D NOS
     Dosage: 20000 INTERNATIONAL UNIT, QW, (20000 IU / WEEK, 1X
     Route: 065
  11. RETACRIT [Concomitant]
     Active Substance: EPOETIN ALFA-EPBX
     Dosage: 2000 INTERNATIONAL UNIT/ WEEKS, 2X, SOLUTION FOR I
     Route: 065
  12. ASPIRIN [Concomitant]
     Active Substance: ASPIRIN
     Dosage: 100 MILLIGRAM (100 MG, 1-0-0-0, TABLETS)
     Route: 065

REACTIONS (5)
  - Condition aggravated [Unknown]
  - Product prescribing error [Unknown]
  - Renal impairment [Unknown]
  - Acute kidney injury [Unknown]
  - Diarrhoea [Unknown]
